FAERS Safety Report 8518289-6 (Version None)
Quarter: 2012Q3

REPORT INFORMATION
  Report Type: 
  Country: None (occurrence: None)
  Receive Date: 20120718
  Receipt Date: 20111230
  Transmission Date: 20120928
  Serious: No
  Sender: FDA-Public Use
  Company Number: US-BRISTOL-MYERS SQUIBB COMPANY-16326712

PATIENT
  Age: 88 Year
  Sex: Female

DRUGS (8)
  1. TYLENOL [Concomitant]
  2. WARFARIN SODIUM [Suspect]
  3. SOTALOL HCL [Suspect]
     Indication: BLOOD PRESSURE
  4. CRESTOR [Concomitant]
  5. LEVOTHYROXINE SODIUM [Concomitant]
  6. ASPIRIN [Concomitant]
  7. METOPROLOL TARTRATE [Suspect]
     Indication: BLOOD PRESSURE
  8. AVAPRO [Suspect]
     Indication: BLOOD PRESSURE

REACTIONS (2)
  - DIZZINESS [None]
  - VISION BLURRED [None]
